FAERS Safety Report 6936311-5 (Version None)
Quarter: 2010Q3

REPORT INFORMATION
  Report Type: 
  Country: None (occurrence: None)
  Receive Date: 20100823
  Receipt Date: 20100810
  Transmission Date: 20110219
  Serious: Yes (Hospitalization)
  Sender: FDA-Public Use
  Company Number: PL-ELI_LILLY_AND_COMPANY-PL201008003750

PATIENT
  Sex: Male
  Weight: 49 kg

DRUGS (8)
  1. NECITUMUMAB (11F8) (LY3012211) [Suspect]
     Indication: NON-SMALL CELL LUNG CANCER
     Dosage: 800 MG, OTHER
     Route: 042
     Dates: start: 20100531
  2. GEMCITABINE HCL [Suspect]
     Indication: NON-SMALL CELL LUNG CANCER
     Dosage: 1987 MG, OTHER
     Route: 042
     Dates: start: 20100531
  3. CISPLATIN [Suspect]
     Indication: NON-SMALL CELL LUNG CANCER
     Dosage: 119 MG, OTHER
     Route: 042
     Dates: start: 20100531
  4. ATROVENT [Concomitant]
     Dosage: 2 D/F, 4/D
     Route: 055
  5. THEOSPIREX [Concomitant]
  6. HELICID [Concomitant]
     Dosage: 20 MG, DAILY (1/D)
  7. THIOCODIN                          /01295801/ [Concomitant]
  8. TRAMAL [Concomitant]
     Dosage: 100 MG, 2/D

REACTIONS (3)
  - DIZZINESS [None]
  - HEADACHE [None]
  - NAUSEA [None]
